FAERS Safety Report 22381448 (Version 2)
Quarter: 2023Q2

REPORT INFORMATION
  Report Type: Spontaneous
  Country: US (occurrence: US)
  Receive Date: 20230530
  Receipt Date: 20230602
  Transmission Date: 20230722
  Serious: No
  Sender: FDA-Public Use
  Company Number: US-ASPEN-GLO2023US003327

PATIENT

DRUGS (8)
  1. BENZTROPINE MESYLATE [Suspect]
     Active Substance: BENZTROPINE MESYLATE
     Indication: Psychotic disorder
     Dosage: 1 MG, BID
     Route: 048
  2. BENZTROPINE MESYLATE [Suspect]
     Active Substance: BENZTROPINE MESYLATE
     Dosage: 0.5 MG (PER WEEK)
     Route: 048
  3. BENZTROPINE MESYLATE [Suspect]
     Active Substance: BENZTROPINE MESYLATE
     Dosage: 0.5 MG, QD
     Route: 048
  4. BENZTROPINE MESYLATE [Suspect]
     Active Substance: BENZTROPINE MESYLATE
     Dosage: 1 MG, BID
     Route: 048
  5. HALOPERIDOL [Suspect]
     Active Substance: HALOPERIDOL
     Indication: Psychotic disorder
     Dosage: 12.0 MG (BED TIME)
     Route: 048
  6. RISPERIDONE [Suspect]
     Active Substance: RISPERIDONE
     Indication: Psychotic disorder
     Dosage: 4 MG (AT BEDTIME)
     Route: 048
  7. AMANTADINE [Suspect]
     Active Substance: AMANTADINE
     Indication: Dyskinesia
     Dosage: UNK
     Route: 048
  8. AMANTADINE [Suspect]
     Active Substance: AMANTADINE
     Dosage: 200 MG, BID
     Route: 048

REACTIONS (3)
  - Off label use [Unknown]
  - Drug withdrawal syndrome [Unknown]
  - Dyskinesia [Recovered/Resolved]
